FAERS Safety Report 4616640-0 (Version None)
Quarter: 2005Q1

REPORT INFORMATION
  Report Type: 
  Country: None (occurrence: None)
  Receive Date: 20050318
  Receipt Date: 20050304
  Transmission Date: 20050727
  Serious: Yes (Hospitalization)
  Sender: FDA-Public Use
  Company Number: 2005BI001025

PATIENT
  Age: 45 Year
  Sex: Female

DRUGS (7)
  1. AVONEX [Suspect]
     Indication: MULTIPLE SCLEROSIS
     Dosage: 30 UG; QW; IM
     Route: 030
     Dates: start: 19980601, end: 20031001
  2. OSTEOPOROSIS MEDICATION (NOS) [Concomitant]
  3. MACRODANTIN [Concomitant]
  4. BACLOFEN [Concomitant]
  5. ELAVIL [Concomitant]
  6. DITROPAN [Concomitant]
  7. AMANTADINE [Concomitant]

REACTIONS (2)
  - BURN OESOPHAGEAL [None]
  - UNEVALUABLE EVENT [None]
